FAERS Safety Report 18969104 (Version 1)
Quarter: 2021Q1

REPORT INFORMATION
  Report Type: Report from Study
  Country: JP (occurrence: JP)
  Receive Date: 20210304
  Receipt Date: 20210304
  Transmission Date: 20210420
  Serious: Yes (Other)
  Sender: FDA-Public Use
  Company Number: JP-JNJFOC-20210306937

PATIENT

DRUGS (1)
  1. CANAGLIFLOZIN [Suspect]
     Active Substance: CANAGLIFLOZIN
     Indication: TYPE 2 DIABETES MELLITUS
     Route: 048

REACTIONS (9)
  - Pruritus genital [Unknown]
  - Pain in extremity [Unknown]
  - Hypoglycaemia [Unknown]
  - Nasopharyngitis [Unknown]
  - Hepatic neoplasm [Unknown]
  - Blood ketone body increased [Unknown]
  - Abdominal discomfort [Unknown]
  - Cystitis [Unknown]
  - Back pain [Unknown]
